FAERS Safety Report 19419114 (Version 1)
Quarter: 2021Q2

REPORT INFORMATION
  Report Type: Spontaneous
  Country: PL (occurrence: PL)
  Receive Date: 20210615
  Receipt Date: 20210615
  Transmission Date: 20210717
  Serious: Yes (Other)
  Sender: FDA-Public Use
  Company Number: PL-MYLANLABS-2021M1034191

PATIENT
  Age: 59 Year
  Sex: Male

DRUGS (9)
  1. CYCLOPHOSPHAMIDE. [Suspect]
     Active Substance: CYCLOPHOSPHAMIDE
     Indication: PLASMA CELL MYELOMA
     Dosage: 6 VCD (30?APR?2018 ? 31?AUG?2018) ? ENDOXAN: 50 % OF DOSE DUE TO INTOLERANCE
     Route: 065
     Dates: start: 20180430, end: 20180831
  2. REVLIMID [Suspect]
     Active Substance: LENALIDOMIDE
     Indication: PLASMA CELL MYELOMA
     Dosage: 4 CYCLES OF VRD (VELCADE 1 MG/M2/D WEEKLY) ? 14?NOV?2018 ? 01?MAR?2019
     Route: 065
     Dates: start: 20181114, end: 20190301
  3. DEXAMETHASONE. [Suspect]
     Active Substance: DEXAMETHASONE
     Indication: PLASMA CELL MYELOMA
     Dosage: 2 VD/ (19?MAR?2018 ? 09?APR?2018)
     Route: 065
     Dates: start: 20180319, end: 20180409
  4. VELCADE [Suspect]
     Active Substance: BORTEZOMIB
     Indication: PLASMA CELL MYELOMA
     Dosage: 2 VD/ (19?MAR?2018 ? 09?APR?2018)
     Route: 065
     Dates: start: 20180319, end: 20180409
  5. VELCADE [Suspect]
     Active Substance: BORTEZOMIB
     Dosage: 6 VCD (30?APR?2018 ? 31?AUG?2018)
     Route: 065
     Dates: start: 20180430, end: 20180831
  6. DARZALEX [Suspect]
     Active Substance: DARATUMUMAB
     Indication: PLASMA CELL MYELOMA
     Dosage: DVD
     Route: 065
  7. DEXAMETHASONE. [Suspect]
     Active Substance: DEXAMETHASONE
     Dosage: 4 CYCLES OF VRD (VELCADE 1 MG/M2/D WEEKLY) ? 14?NOV?2018 ? 01?MAR?2019UNK
     Route: 065
     Dates: start: 20181114, end: 20190301
  8. DEXAMETHASONE. [Suspect]
     Active Substance: DEXAMETHASONE
     Dosage: 6 VCD (30?APR?2018 ? 31?AUG?2018)
     Route: 065
     Dates: start: 20180430, end: 20180831
  9. VELCADE [Suspect]
     Active Substance: BORTEZOMIB
     Dosage: 4 CYCLES OF VRD (VELCADE 1 MG/M2/D WEEKLY) ? 14?NOV?2018 ? 01?MAR?2019
     Route: 065
     Dates: start: 20181114, end: 20190301

REACTIONS (4)
  - Plasma cell myeloma [Unknown]
  - Hypersensitivity [Recovered/Resolved]
  - Drug intolerance [Unknown]
  - Polyneuropathy [Unknown]
